FAERS Safety Report 7206643-4 (Version None)
Quarter: 2011Q1

REPORT INFORMATION
  Report Type: 
  Country: None (occurrence: None)
  Receive Date: 20110103
  Receipt Date: 20101222
  Transmission Date: 20110831
  Serious: Yes (Hospitalization, Other)
  Sender: FDA-Public Use
  Company Number: US-ELI_LILLY_AND_COMPANY-US201008002248

PATIENT
  Sex: Female
  Weight: 55.329 kg

DRUGS (18)
  1. CLONAZEPAM [Concomitant]
     Indication: MUSCLE SPASMS
     Dosage: 5 MG, EACH EVENING
  2. CALCIUM W/MAGNESIUM/ZINC [Concomitant]
  3. VITAMIN B-12 [Concomitant]
  4. SPIRIVA [Concomitant]
     Dosage: 1 D/F, DAILY (1/D)
  5. METRONIDAZOLE [Concomitant]
     Route: 061
  6. VITAMIN B3 [Concomitant]
  7. CLONAZEPAM [Concomitant]
     Dosage: 10 MG, EACH EVENING
  8. TYLENOL (CAPLET) [Concomitant]
     Dosage: 500 MG, AS NEEDED
  9. MULTI-VITAMIN [Concomitant]
  10. FORTEO [Suspect]
     Indication: OSTEOPOROSIS
     Dosage: 20 UG, DAILY (1/D)
     Dates: start: 20100506
  11. PRILOSEC [Concomitant]
     Dosage: 1 D/F, DAILY (1/D)
  12. LOVASTATIN [Concomitant]
     Dosage: 1 D/F, EACH EVENING
  13. BENICAR HCT [Concomitant]
     Dosage: 1 D/F, DAILY (1/D)
  14. FORTEO [Suspect]
     Dosage: 20 UG, DAILY (1/D)
  15. METOPROLOL SUCCINATE [Concomitant]
     Dosage: 12.5 MG, DAILY (1/D)
  16. PROAIR HFA [Concomitant]
     Dosage: 1 D/F, 2/D
     Route: 055
  17. CALCIUM [Concomitant]
  18. MELATONIN [Concomitant]
     Indication: SLEEP DISORDER
     Dosage: 5 MG, EACH EVENING

REACTIONS (14)
  - THROMBOSIS [None]
  - VISUAL IMPAIRMENT [None]
  - VISION BLURRED [None]
  - ALOPECIA [None]
  - INFECTION [None]
  - NAUSEA [None]
  - PNEUMONIA [None]
  - CHEST PAIN [None]
  - CHILLS [None]
  - PAIN IN EXTREMITY [None]
  - OXYGEN SATURATION DECREASED [None]
  - INFLUENZA [None]
  - INFLUENZA LIKE ILLNESS [None]
  - BLOOD TEST ABNORMAL [None]
